FAERS Safety Report 25242117 (Version 1)
Quarter: 2025Q2

REPORT INFORMATION
  Report Type: Spontaneous
  Country: PT (occurrence: PT)
  Receive Date: 20250426
  Receipt Date: 20250426
  Transmission Date: 20250716
  Serious: Yes (Other)
  Sender: AUROBINDO
  Company Number: PT-INFARMED-F202504-211

PATIENT
  Age: 80 Year
  Sex: Female
  Weight: 68 kg

DRUGS (1)
  1. LETROZOLE [Suspect]
     Active Substance: LETROZOLE
     Indication: Breast neoplasm
     Route: 048
     Dates: start: 20250113, end: 20250212

REACTIONS (2)
  - Abdominal discomfort [Recovered/Resolved]
  - Product substitution issue [Recovered/Resolved]

NARRATIVE: CASE EVENT DATE: 20250113
